FAERS Safety Report 10889657 (Version 1)
Quarter: 2015Q1

REPORT INFORMATION
  Report Type: Spontaneous
  Country: US (occurrence: US)
  Receive Date: 20150305
  Receipt Date: 20150305
  Transmission Date: 20150721
  Serious: No
  Sender: FDA-Public Use
  Company Number: US-AMGEN-USASP2015019683

PATIENT
  Age: 63 Year
  Sex: Male

DRUGS (1)
  1. ENBREL [Suspect]
     Active Substance: ETANERCEPT
     Indication: HIDRADENITIS
     Dosage: UNK UNK, QWK
     Route: 065

REACTIONS (3)
  - Off label use [Not Recovered/Not Resolved]
  - Cyst [Not Recovered/Not Resolved]
  - Skin haemorrhage [Not Recovered/Not Resolved]
